FAERS Safety Report 13488621 (Version 1)
Quarter: 2017Q2

REPORT INFORMATION
  Report Type: Spontaneous
  Country: US (occurrence: US)
  Receive Date: 20170426
  Receipt Date: 20170426
  Transmission Date: 20170830
  Serious: No
  Sender: FDA-Public Use
  Company Number: None

PATIENT
  Age: 59 Year
  Sex: Female

DRUGS (1)
  1. GLEEVEC [Suspect]
     Active Substance: IMATINIB MESYLATE

REACTIONS (8)
  - Fatigue [None]
  - Diarrhoea [None]
  - Periorbital oedema [None]
  - Depression [None]
  - Gravitational oedema [None]
  - Cardiac failure congestive [None]
  - Fluid retention [None]
  - Muscle spasms [None]

NARRATIVE: CASE EVENT DATE: 20161229
